FAERS Safety Report 4314507-9 (Version None)
Quarter: 2004Q1

REPORT INFORMATION
  Report Type: 
  Country: None (occurrence: None)
  Receive Date: 20040308
  Receipt Date: 20040223
  Transmission Date: 20041129
  Serious: Yes (Death)
  Sender: FDA-Public Use
  Company Number: 2004S1000037

PATIENT
  Age: 87 Year
  Sex: Female
  Weight: 83.9154 kg

DRUGS (14)
  1. DAPTOMYCIN [Suspect]
     Indication: STAPHYLOCOCCAL BACTERAEMIA
     Dosage: 500 MG; QD; IV
     Route: 042
     Dates: start: 20040213, end: 20040222
  2. NOVOLOG [Concomitant]
  3. FUROSEMIDE [Concomitant]
  4. MORPHINE [Concomitant]
  5. DIGOXIN [Concomitant]
  6. ROFECOXIB [Concomitant]
  7. WARFARIN SODIUM [Concomitant]
  8. GLIPIZIDE [Concomitant]
  9. ATENOLOL [Concomitant]
  10. HEPARIN [Concomitant]
  11. LANTUS [Concomitant]
  12. DARVOCET-N 100 [Concomitant]
  13. BUSPIRONE HCL [Concomitant]
  14. ROFECOXIB [Concomitant]

REACTIONS (13)
  - APHAGIA [None]
  - ASTHENIA [None]
  - ATRIAL FIBRILLATION [None]
  - BACK PAIN [None]
  - BLOOD PRESSURE IMMEASURABLE [None]
  - CARDIAC ARREST [None]
  - DIABETES MELLITUS NON-INSULIN-DEPENDENT [None]
  - DYSPNOEA [None]
  - NECK PAIN [None]
  - PAIN [None]
  - PULSE PRESSURE DECREASED [None]
  - RESTLESSNESS [None]
  - TREATMENT NONCOMPLIANCE [None]
